FAERS Safety Report 4699231-5 (Version None)
Quarter: 2005Q2

REPORT INFORMATION
  Report Type: 
  Country: None (occurrence: None)
  Receive Date: 20050622
  Receipt Date: 20050609
  Transmission Date: 20051028
  Serious: Yes (Other)
  Sender: FDA-Public Use
  Company Number: 2005085414

PATIENT
  Age: 76 Year
  Sex: Male

DRUGS (1)
  1. GLADEM (SERTRALINE) [Suspect]
     Indication: DEPRESSION
     Dosage: 50 MG, ORAL
     Route: 048
     Dates: start: 20050201, end: 20050415

REACTIONS (2)
  - ANGINA PECTORIS [None]
  - DRUG INEFFECTIVE [None]
